FAERS Safety Report 6898286-7 (Version None)
Quarter: 2010Q3

REPORT INFORMATION
  Report Type: 
  Country: None (occurrence: None)
  Receive Date: 20100802
  Receipt Date: 20071001
  Transmission Date: 20110219
  Serious: No
  Sender: FDA-Public Use
  Company Number: US-PFIZER INC-2007082312

PATIENT
  Age: 18 Year
  Sex: Male

DRUGS (4)
  1. LYRICA [Suspect]
     Indication: EPILEPSY
     Dates: start: 20070905
  2. LAMICTAL [Concomitant]
  3. TRILEPTAL [Concomitant]
  4. LEVOTHYROXINE SODIUM [Concomitant]

REACTIONS (1)
  - ACNE [None]
